FAERS Safety Report 8422680-6 (Version None)
Quarter: 2012Q2

REPORT INFORMATION
  Report Type: 
  Country: None (occurrence: None)
  Receive Date: 20120608
  Receipt Date: 20120531
  Transmission Date: 20120825
  Serious: Yes (Hospitalization)
  Sender: FDA-Public Use
  Company Number: GB-ABBOTT-12P-167-0941166-00

PATIENT
  Age: 78 Year
  Sex: Female

DRUGS (1)
  1. HUMIRA [Suspect]
     Indication: RHEUMATOID ARTHRITIS
     Route: 058
     Dates: start: 20120101

REACTIONS (5)
  - URINARY TRACT INFECTION [None]
  - KLEBSIELLA INFECTION [None]
  - SYNCOPE [None]
  - SEPSIS [None]
  - HYDRONEPHROSIS [None]
